FAERS Safety Report 5257176-6 (Version None)
Quarter: 2007Q1

REPORT INFORMATION
  Report Type: 
  Country: None (occurrence: None)
  Receive Date: 20070307
  Receipt Date: 20070301
  Transmission Date: 20070707
  Serious: Yes (Hospitalization)
  Sender: FDA-Public Use
  Company Number: US-ROCHE-485036

PATIENT
  Age: 67 Year
  Sex: Female

DRUGS (2)
  1. CAPECITABINE [Suspect]
     Route: 048
     Dates: start: 20060807
  2. LAPATINIB [Suspect]
     Route: 048
     Dates: start: 20060807

REACTIONS (1)
  - LUNG INFILTRATION [None]
